FAERS Safety Report 4650704-0 (Version None)
Quarter: 2005Q2

REPORT INFORMATION
  Report Type: 
  Country: None (occurrence: None)
  Receive Date: 20050331
  Receipt Date: 20050119
  Transmission Date: 20051028
  Serious: No
  Sender: FDA-Public Use
  Company Number: 05P-163-0287319-00

PATIENT
  Age: 51 Year
  Sex: Female
  Weight: 84.8226 kg

DRUGS (9)
  1. HUMIRA [Suspect]
     Indication: RHEUMATOID ARTHRITIS
     Dosage: 40 MG, 1 IN 2 WK, SUBCUTANEOUS
     Route: 058
     Dates: start: 20040101
  2. POTASSIUM CHLORIDE [Concomitant]
  3. DYAZIDE [Concomitant]
  4. ENALAPRIL MALEATE [Concomitant]
  5. DILTIAZEM HYDROCHLORIDE [Concomitant]
  6. EFFEXOR XR [Concomitant]
  7. MORPHINE SULFATE [Concomitant]
  8. METHOTREXATE SODIUM [Concomitant]
  9. ALBUTEROL SULFATE HFA [Concomitant]

REACTIONS (2)
  - HEPATIC ENZYME INCREASED [None]
  - INJECTION SITE IRRITATION [None]
